FAERS Safety Report 13720038 (Version 1)
Quarter: 2017Q3

REPORT INFORMATION
  Report Type: Other
  Country: DE (occurrence: DE)
  Receive Date: 20170705
  Receipt Date: 20170705
  Transmission Date: 20171127
  Serious: Yes (Other)
  Sender: FDA-Public Use
  Company Number: DE-LUPIN PHARMACEUTICALS INC.-E2B_00005603

PATIENT
  Sex: Female
  Weight: 112 kg

DRUGS (1)
  1. SIMVASTATIN. [Suspect]
     Active Substance: SIMVASTATIN
     Indication: PRODUCT USED FOR UNKNOWN INDICATION
     Dosage: 20 UNK,UNK,UNKNOWN
     Route: 048
     Dates: start: 2015, end: 2016

REACTIONS (2)
  - Arthralgia [Recovering/Resolving]
  - Myopathy [Not Recovered/Not Resolved]
